FAERS Safety Report 25171414 (Version 2)
Quarter: 2025Q2

REPORT INFORMATION
  Report Type: Spontaneous
  Country: TR (occurrence: TR)
  Receive Date: 20250408
  Receipt Date: 20250429
  Transmission Date: 20250717
  Serious: No
  Sender: JOHNSON AND JOHNSON
  Company Number: TR-JNJFOC-20250372756

PATIENT

DRUGS (1)
  1. SIMPONI [Suspect]
     Active Substance: GOLIMUMAB
     Indication: Product used for unknown indication
     Route: 058

REACTIONS (2)
  - Product dose omission issue [Unknown]
  - Device issue [Unknown]
